FAERS Safety Report 17720369 (Version 2)
Quarter: 2020Q3

REPORT INFORMATION
  Report Type: Report from Study
  Country: TH (occurrence: TH)
  Receive Date: 20200428
  Receipt Date: 20200707
  Transmission Date: 20201104
  Serious: Yes (Life-Threatening, Hospitalization)
  Sender: FDA-Public Use
  Company Number: TH-NOVOPROD-719315

PATIENT
  Age: 11 Month
  Sex: Male
  Weight: 10 kg

DRUGS (2)
  1. TUROCTOCOG ALFA PEGOL 500 IU [Suspect]
     Active Substance: TUROCTOCOG ALFA PEGOL
     Indication: FACTOR VIII DEFICIENCY
     Dosage: 60.0,U/KG,EVERY 7TH DAY (Q7D)
     Route: 042
     Dates: start: 20200118, end: 20200316
  2. TUROCTOCOG ALFA PEGOL 500 IU [Suspect]
     Active Substance: TUROCTOCOG ALFA PEGOL
     Dosage: 75 U/KGTWICE WEEKLY (BIS)
     Route: 042
     Dates: start: 20200415

REACTIONS (2)
  - Seizure [Recovered/Resolved]
  - Cerebral haemorrhage [Recovered/Resolved]

NARRATIVE: CASE EVENT DATE: 20200313
